FAERS Safety Report 8270016-6 (Version None)
Quarter: 2012Q2

REPORT INFORMATION
  Report Type: 
  Country: None (occurrence: None)
  Receive Date: 20120410
  Receipt Date: 20120327
  Transmission Date: 20120825
  Serious: No
  Sender: FDA-Public Use
  Company Number: US-B.I. PHARMACEUTICALS,INC./RIDGEFIELD-2012-BP-05804BP

PATIENT
  Sex: Male

DRUGS (15)
  1. SPIRIVA [Suspect]
     Indication: CHRONIC OBSTRUCTIVE PULMONARY DISEASE
     Dosage: 18 MCG
     Route: 055
     Dates: start: 20120321
  2. LIQUID TEARS [Concomitant]
     Route: 031
  3. COLACE [Concomitant]
     Dosage: 300 MG
     Route: 048
  4. IRON SULFATETHIAMIN COMPOUND TAB [Concomitant]
     Indication: ANAEMIA
     Dosage: 650 MG
     Route: 048
  5. TRIGOSAMINE [Concomitant]
     Indication: ARTHRITIS
     Route: 048
  6. FUROSEMIDE [Concomitant]
     Indication: HYPERTENSION
     Dosage: 20 MG
     Route: 048
  7. ISOSORBIDE DINITRATE [Concomitant]
     Indication: UNEVALUABLE EVENT
     Dosage: 60 MG
     Route: 048
  8. FINASTERIDE [Concomitant]
     Indication: BENIGN PROSTATIC HYPERPLASIA
     Dosage: 5 MG
     Route: 048
  9. ASPIRIN [Concomitant]
     Dosage: 650 MG
     Route: 048
  10. DORZOLAMIDE [Concomitant]
     Indication: GLAUCOMA
  11. CRESTOR [Concomitant]
     Indication: BLOOD CHOLESTEROL INCREASED
     Dosage: 40 MG
     Route: 048
  12. NITROGLYCERIN [Concomitant]
     Indication: UNEVALUABLE EVENT
     Route: 060
  13. OMEPRAZOLE [Concomitant]
     Indication: UNEVALUABLE EVENT
     Dosage: 20 MG
     Route: 048
  14. MLOXICAM [Concomitant]
     Indication: ARTHRITIS
     Dosage: 15 MG
     Route: 048
  15. METOPROLOL TARTRATE [Concomitant]
     Indication: HYPERTENSION
     Dosage: 100 MG
     Route: 048

REACTIONS (2)
  - DRY EYE [None]
  - CONSTIPATION [None]
